FAERS Safety Report 9197752 (Version 4)
Quarter: 2013Q4

REPORT INFORMATION
  Report Type: Report from Study
  Country: ES (occurrence: ES)
  Receive Date: 20130328
  Receipt Date: 20131028
  Transmission Date: 20140711
  Serious: Yes (Hospitalization)
  Sender: FDA-Public Use
  Company Number: ES-GLAXOSMITHKLINE-Z0019153A

PATIENT
  Age: 72 Year
  Sex: Female
  Weight: 62.4 kg

DRUGS (11)
  1. OFATUMUMAB [Suspect]
     Indication: DIFFUSE LARGE B-CELL LYMPHOMA RECURRENT
     Route: 042
     Dates: start: 20130309, end: 20130309
  2. DEXAMETHASONE [Suspect]
     Indication: DIFFUSE LARGE B-CELL LYMPHOMA RECURRENT
     Dosage: 40MG EVERY 3 WEEKS
     Route: 042
     Dates: start: 20130310, end: 20130313
  3. CISPLATIN [Suspect]
     Indication: DIFFUSE LARGE B-CELL LYMPHOMA RECURRENT
     Dosage: 100MGM2 EVERY 3 WEEKS
     Route: 042
     Dates: start: 20130310, end: 20130311
  4. CYTARABINE [Suspect]
     Indication: DIFFUSE LARGE B-CELL LYMPHOMA RECURRENT
     Dosage: 4GM2 EVERY 3 WEEKS
     Route: 042
     Dates: start: 20130311, end: 20130312
  5. GCSF [Concomitant]
     Dosage: 300MG TWICE PER DAY
     Route: 042
     Dates: start: 20130318, end: 20130321
  6. GCSF [Concomitant]
     Dosage: 300MG PER DAY
     Route: 058
     Dates: start: 20130322, end: 20130323
  7. ESCITALOPRAM [Concomitant]
     Indication: PROPHYLAXIS
     Dosage: 20MG PER DAY
     Route: 048
  8. LORAZEPAM [Concomitant]
     Indication: PROPHYLAXIS
     Dosage: 1MG PER DAY
     Route: 048
  9. PANTOPRAZOL [Concomitant]
     Indication: PROPHYLAXIS
     Dosage: 1MG PER DAY
     Route: 042
     Dates: start: 20130318, end: 20130325
  10. LYRICA [Concomitant]
     Indication: NEURALGIA
     Dosage: 75MG TWICE PER DAY
     Route: 048
  11. LORAZEPAM [Concomitant]
     Indication: PROPHYLAXIS
     Dosage: 1MG PER DAY
     Route: 048
     Dates: start: 20130322, end: 20130323

REACTIONS (1)
  - Renal failure [Recovered/Resolved with Sequelae]
